FAERS Safety Report 12622528 (Version 2)
Quarter: 2016Q3

REPORT INFORMATION
  Report Type: Spontaneous
  Country: US (occurrence: US)
  Receive Date: 20160804
  Receipt Date: 20160804
  Transmission Date: 20161109
  Serious: Yes (Other)
  Sender: FDA-Public Use
  Company Number: US-BAYER-2016-148045

PATIENT
  Age: 44 Year
  Sex: Male
  Weight: 74.83 kg

DRUGS (2)
  1. COPPERTONE TANNING SUNSCREEN SPF 15 [Suspect]
     Active Substance: AVOBENZONE\HOMOSALATE\OCTISALATE\OCTOCRYLENE
     Indication: PROPHYLAXIS AGAINST SOLAR RADIATION
     Dosage: UNK
     Route: 061
     Dates: end: 20160727
  2. COPPERTONE TANNING DRY OIL SPF 10 [Suspect]
     Active Substance: HOMOSALATE\OCTINOXATE\OCTISALATE\OXYBENZONE
     Indication: PROPHYLAXIS AGAINST SOLAR RADIATION
     Dosage: UNK
     Route: 061
     Dates: end: 20160727

REACTIONS (9)
  - Visual acuity reduced [None]
  - Eyelid irritation [None]
  - Insomnia [None]
  - Accidental exposure to product [None]
  - Eyelid oedema [Not Recovered/Not Resolved]
  - Eye swelling [Not Recovered/Not Resolved]
  - Ocular discomfort [Not Recovered/Not Resolved]
  - Eye irritation [None]
  - Eye pain [None]

NARRATIVE: CASE EVENT DATE: 20160727
